FAERS Safety Report 7219471-0 (Version None)
Quarter: 2011Q1

REPORT INFORMATION
  Report Type: 
  Country: None (occurrence: None)
  Receive Date: 20110111
  Receipt Date: 20110103
  Transmission Date: 20110831
  Serious: Yes (Death, Hospitalization)
  Sender: FDA-Public Use
  Company Number: FR-JNJFOC-20110102086

PATIENT
  Sex: Male

DRUGS (27)
  1. TOPALGIC [Suspect]
     Indication: PAIN
     Route: 048
  2. AMITRIPTYLINE HCL [Suspect]
     Indication: PRODUCT USED FOR UNKNOWN INDICATION
     Route: 048
  3. AMITRIPTYLINE HCL [Suspect]
     Route: 048
  4. NEUPOGEN [Concomitant]
  5. TRIFLUCAN [Suspect]
     Indication: PRODUCT USED FOR UNKNOWN INDICATION
     Route: 048
  6. EMEND [Suspect]
     Indication: PRODUCT USED FOR UNKNOWN INDICATION
     Route: 048
  7. ETOPOSIDE [Suspect]
     Indication: EXTRAGONADAL PRIMARY GERM CELL CANCER
     Route: 042
  8. EFFERALGAN [Concomitant]
  9. ORAMORPH SR [Concomitant]
  10. HYDROCORTISONE [Concomitant]
  11. BIONOLYTE [Concomitant]
  12. LEXOMIL [Concomitant]
  13. CARBOPLATIN [Suspect]
     Indication: EXTRAGONADAL PRIMARY GERM CELL CANCER
     Route: 042
  14. NEURONTIN [Suspect]
     Indication: PRODUCT USED FOR UNKNOWN INDICATION
     Route: 048
  15. LIDOCAINE HYDROCHLORIDE IN PLASTIC CONTAINER [Concomitant]
  16. ONDANSETRON [Concomitant]
  17. FLAGYL [Concomitant]
  18. OXYNORM [Concomitant]
  19. EMEND [Suspect]
     Route: 048
  20. DEXCHLORPHENIRAMINE MALEATE [Suspect]
     Indication: PRODUCT USED FOR UNKNOWN INDICATION
     Route: 042
  21. OXYCONTIN [Concomitant]
  22. PRIMPERAN TAB [Concomitant]
  23. ZOPHREN [Concomitant]
  24. CONTRAMAL [Suspect]
     Indication: PAIN
     Route: 048
  25. CIPROFLAXACIN [Suspect]
     Indication: PRODUCT USED FOR UNKNOWN INDICATION
     Route: 048
  26. AUGMENTIN '125' [Suspect]
     Indication: PRODUCT USED FOR UNKNOWN INDICATION
     Route: 048
  27. HALDOL [Suspect]
     Indication: NAUSEA
     Route: 048

REACTIONS (2)
  - ILEITIS [None]
  - FEBRILE BONE MARROW APLASIA [None]
